FAERS Safety Report 17364814 (Version 2)
Quarter: 2020Q1

REPORT INFORMATION
  Report Type: Spontaneous
  Country: US (occurrence: US)
  Receive Date: 20200204
  Receipt Date: 20200314
  Transmission Date: 20200409
  Serious: Yes (Hospitalization)
  Sender: FDA-Public Use
  Company Number: US-EMMAUS MEDICAL, INC.-EMM202001-000062

PATIENT
  Sex: Female

DRUGS (3)
  1. ENDARI [Suspect]
     Active Substance: GLUTAMINE
     Indication: PULMONARY EMBOLISM
     Route: 048
  2. KEPPRA [Concomitant]
     Active Substance: LEVETIRACETAM
     Indication: PRODUCT USED FOR UNKNOWN INDICATION
  3. KEPPRA [Concomitant]
     Active Substance: LEVETIRACETAM

REACTIONS (8)
  - Off label use [Unknown]
  - Cerebrovascular accident [Not Recovered/Not Resolved]
  - Fatigue [Not Recovered/Not Resolved]
  - Sickle cell anaemia with crisis [Unknown]
  - Pain in extremity [Not Recovered/Not Resolved]
  - Headache [Not Recovered/Not Resolved]
  - Dizziness [Not Recovered/Not Resolved]
  - Back pain [Not Recovered/Not Resolved]
